FAERS Safety Report 8200660-3 (Version None)
Quarter: 2012Q1

REPORT INFORMATION
  Report Type: 
  Country: None (occurrence: None)
  Receive Date: 20120223
  Receipt Date: 20120206
  Transmission Date: 20120608
  Serious: Yes (Death, Other)
  Sender: FDA-Public Use
  Company Number: 2012PROUSA01067

PATIENT
  Age: 81 Year
  Sex: Male
  Weight: 79.4 kg

DRUGS (12)
  1. DES /00063501/ (DIETHYLSTILBESTROL) [Concomitant]
  2. GLUCOSAMINE (GLUCOSAMINE) [Concomitant]
  3. LASIX [Concomitant]
  4. REQUIP [Concomitant]
  5. ASPIRIN [Concomitant]
  6. STALEVO 100 [Concomitant]
  7. ZYRTEC [Concomitant]
  8. STOOL SOFTENER (DOCUSATE SODIUM) [Concomitant]
  9. PROVENGE [Suspect]
     Indication: PROSTATE CANCER METASTATIC
     Dosage: 250 ML, SINGLE, INTRAVENOUS
     Route: 042
     Dates: start: 20110805, end: 20110805
  10. LIPITOR [Concomitant]
  11. APO-PREDNISONE (PREDNISONE) [Concomitant]
  12. ADVIL /00109201/ (IBUPROFEN) [Concomitant]

REACTIONS (7)
  - SKULL FRACTURE [None]
  - SUDDEN DEATH [None]
  - HUMERUS FRACTURE [None]
  - PROSTATIC SPECIFIC ANTIGEN INCREASED [None]
  - NEOPLASM PROGRESSION [None]
  - PROSTATE CANCER METASTATIC [None]
  - FALL [None]
